FAERS Safety Report 5129270-1 (Version None)
Quarter: 2006Q4

REPORT INFORMATION
  Report Type: 
  Country: None (occurrence: None)
  Receive Date: 20061011
  Receipt Date: 20061005
  Transmission Date: 20070319
  Serious: Yes (Hospitalization)
  Sender: FDA-Public Use
  Company Number: TCI2006A04192

PATIENT
  Age: 74 Year
  Sex: Female

DRUGS (6)
  1. LANSOPRAZOLE [Suspect]
     Indication: REFLUX OESOPHAGITIS
     Dosage: 15 MG (15 MG, 1D) PER ORAL
     Route: 048
  2. BLOPRESS (CANDESARTAN CILEXETIL (TABLETS) [Suspect]
     Dosage: PRE ORAL
     Route: 048
  3. ARTIST (CARVEDILOL) (TABLETS) [Concomitant]
  4. ASPIRIN [Concomitant]
  5. FLUITRAN (TRICHLORMETHIAZIDE) (TABLETS) [Concomitant]
  6. HORIXON (DIAZEPAM) [Concomitant]

REACTIONS (1)
  - LEUKOPLAKIA [None]
